FAERS Safety Report 9862103 (Version 1)
Quarter: 2014Q1

REPORT INFORMATION
  Report Type: Spontaneous
  Country: US (occurrence: None)
  Receive Date: 20140131
  Receipt Date: 20140131
  Transmission Date: 20141002
  Serious: Yes (Hospitalization)
  Sender: FDA-Public Use
  Company Number: None

PATIENT
  Age: 66 Year
  Sex: Male
  Weight: 114.1 kg

DRUGS (1)
  1. HYDROCHLOROTHIAZIDE/LISINOPRIL [Suspect]
     Route: 048
     Dates: start: 20130322, end: 20131204

REACTIONS (11)
  - Nausea [None]
  - Vomiting [None]
  - Dyspnoea [None]
  - Glossodynia [None]
  - Drooling [None]
  - Dysphagia [None]
  - Dizziness [None]
  - Somnolence [None]
  - Local swelling [None]
  - Swollen tongue [None]
  - Aphasia [None]
